FAERS Safety Report 25158667 (Version 2)
Quarter: 2025Q4

REPORT INFORMATION
  Report Type: Report from Study
  Country: US (occurrence: US)
  Receive Date: 20250404
  Receipt Date: 20251209
  Transmission Date: 20260117
  Serious: No
  Sender: SANDOZ
  Company Number: US-SANDOZ-SDZ2025US018341

PATIENT
  Age: 14 Year
  Sex: Male

DRUGS (4)
  1. OMNITROPE [Suspect]
     Active Substance: SOMATROPIN
     Indication: Short stature
     Dosage: 40 IU, 6 DAYS PER WEEK IU,STRENGTH 5 MG/ML
     Route: 058
     Dates: start: 20250305
  2. OMNITROPE [Suspect]
     Active Substance: SOMATROPIN
     Indication: Short stature
     Dosage: 40 IU, 6 DAYS PER WEEK IU,STRENGTH 5 MG/ML
     Route: 058
     Dates: start: 20250305
  3. OMNITROPE [Suspect]
     Active Substance: SOMATROPIN
     Dosage: 0.48 ML, QD
     Route: 058
  4. OMNITROPE [Suspect]
     Active Substance: SOMATROPIN
     Dosage: 0.48 ML, QD
     Route: 058

REACTIONS (4)
  - Product preparation issue [Unknown]
  - Incorrect dose administered [Unknown]
  - Circumstance or information capable of leading to medication error [Unknown]
  - Needle issue [Unknown]

NARRATIVE: CASE EVENT DATE: 20250305
